FAERS Safety Report 7442511-0 (Version None)
Quarter: 2011Q2

REPORT INFORMATION
  Report Type: 
  Country: None (occurrence: None)
  Receive Date: 20110428
  Receipt Date: 20110418
  Transmission Date: 20111010
  Serious: Yes (Death)
  Sender: FDA-Public Use
  Company Number: DE-ROCHE-773447

PATIENT
  Age: 59 Year
  Sex: Male
  Weight: 76 kg

DRUGS (2)
  1. FOLFOX REGIMEN [Concomitant]
     Dates: start: 20101103, end: 20110322
  2. BEVACIZUMAB [Suspect]
     Route: 042
     Dates: start: 20101109, end: 20110322

REACTIONS (2)
  - NEOPLASM MALIGNANT [None]
  - DEATH [None]
